FAERS Safety Report 6069029-4 (Version None)
Quarter: 2009Q1

REPORT INFORMATION
  Report Type: 
  Country: None (occurrence: None)
  Receive Date: 20090206
  Receipt Date: 20090130
  Transmission Date: 20090719
  Serious: No
  Sender: FDA-Public Use
  Company Number: US-ELI_LILLY_AND_COMPANY-US200808004994

PATIENT
  Sex: Male
  Weight: 113.38 kg

DRUGS (11)
  1. BYETTA [Suspect]
     Indication: TYPE 2 DIABETES MELLITUS
     Dosage: 5 UG, 2/D
     Route: 058
     Dates: start: 20070129, end: 20070101
  2. BYETTA [Suspect]
     Dosage: 10 UG, 2/D
     Route: 058
     Dates: start: 20070201, end: 20071001
  3. BYETTA [Suspect]
     Dosage: 5 UG, UNKNOWN
  4. BYETTA [Suspect]
     Dosage: 5 UG, 2/D
     Route: 058
     Dates: start: 20080601, end: 20080801
  5. GLUCOVANCE [Concomitant]
     Indication: TYPE 2 DIABETES MELLITUS
     Dosage: UNK, UNKNOWN
  6. VERAPAMIL [Concomitant]
     Indication: BLOOD PRESSURE
     Dosage: UNK, UNKNOWN
  7. LEXAPRO [Concomitant]
     Indication: DEPRESSION
     Dosage: 20 MG, UNKNOWN
  8. FUROSEMIDE [Concomitant]
     Dosage: UNK, UNKNOWN
  9. INSULIN [Concomitant]
     Dosage: UNK, UNKNOWN
  10. ASPIRIN [Concomitant]
     Dosage: 81 MG, DAILY (1/D)
  11. ZOCOR [Concomitant]
     Indication: LIPIDS
     Dosage: 20 MG, UNKNOWN

REACTIONS (5)
  - BLOOD GLUCOSE DECREASED [None]
  - HYPERHIDROSIS [None]
  - NAUSEA [None]
  - URINARY TRACT INFECTION [None]
  - WEIGHT DECREASED [None]
